FAERS Safety Report 9146547 (Version 1)
Quarter: 2013Q1

REPORT INFORMATION
  Report Type: Spontaneous
  Country: CN (occurrence: CN)
  Receive Date: 20130307
  Receipt Date: 20130307
  Transmission Date: 20140127
  Serious: Yes (Other)
  Sender: FDA-Public Use
  Company Number: CN-PFIZER INC-2013073902

PATIENT
  Age: 11 Month
  Sex: Male

DRUGS (2)
  1. AZITHROMYCIN [Suspect]
     Indication: LUNG INFECTION
     Dosage: UNK
     Route: 041
  2. CEFPROZIL [Suspect]

REACTIONS (5)
  - Drug ineffective [Recovered/Resolved]
  - Bronchopneumonia [Recovered/Resolved]
  - Lobar pneumonia [Recovered/Resolved]
  - Pyrexia [Recovered/Resolved]
  - Increased upper airway secretion [Recovered/Resolved]
